FAERS Safety Report 4991124-9 (Version None)
Quarter: 2006Q2

REPORT INFORMATION
  Report Type: 
  Country: None (occurrence: None)
  Receive Date: 20060428
  Receipt Date: 20060330
  Transmission Date: 20061013
  Serious: Yes (Life-Threatening, Hospitalization, Other)
  Sender: FDA-Public Use
  Company Number: HU200602004907

PATIENT
  Age: 46 Year
  Sex: Male

DRUGS (16)
  1. ZYPREXA [Suspect]
     Indication: BIPOLAR DISORDER
     Dosage: 20 MG, DAILY (1/D), ORAL
     Route: 048
     Dates: start: 20041019, end: 20060214
  2. MAXIPIME /GFR/ (CEFEPIME HYDROCHLORIDE) [Concomitant]
  3. KLION (METRONIDAZOLE) [Concomitant]
  4. AMIKIN /USA/ (AMIKACIN SULFATE) [Concomitant]
  5. FRAXIPARINE /FRA/ (HEPARIN-FRACTION, CALCIUM SALT) [Concomitant]
  6. CONTROLOC (PANTOPRAZOLE) [Concomitant]
  7. MEDROL ACETATE [Concomitant]
  8. FLOXET (FLUOXETINE) [Concomitant]
  9. TENSIOMIN (CAPTOPRIL) [Concomitant]
  10. KALDYUM (POTASSIUM CHLORIDE) [Concomitant]
  11. AMLEXANOX (AMLEXANOX) [Concomitant]
  12. FLOXAL EYEDROPS (BENZALKONIUM CHLORIDE, OFLOXACIN) [Concomitant]
  13. NORAMINOPHENAZONUM (METAMIZOLE SODIUM) [Concomitant]
  14. ALLOBARBITAL (ALLOBARBITAL) [Concomitant]
  15. AMINOPHENAZONE (AMINOPHENAZONE) [Concomitant]
  16. STEROFUNDIN (ELECTROLYTES NOS) [Concomitant]

REACTIONS (9)
  - BACTERIAL SEPSIS [None]
  - DISSEMINATED INTRAVASCULAR COAGULATION [None]
  - GASTROINTESTINAL HAEMORRHAGE [None]
  - HEPATIC FAILURE [None]
  - HYPOACUSIS [None]
  - POST PROCEDURAL HAEMORRHAGE [None]
  - RENAL FAILURE [None]
  - SHOCK [None]
  - THROMBOCYTOPENIA [None]
